FAERS Safety Report 9669171 (Version 1)
Quarter: 2013Q4

REPORT INFORMATION
  Report Type: Spontaneous
  Country: AU (occurrence: AU)
  Receive Date: 20131105
  Receipt Date: 20131105
  Transmission Date: 20140711
  Serious: Yes (Other)
  Sender: FDA-Public Use
  Company Number: AU-MYLANLABS-2013S1024027

PATIENT
  Sex: Male

DRUGS (1)
  1. EPINEPHRINE [Suspect]
     Route: 013

REACTIONS (4)
  - Hypertension [Recovered/Resolved]
  - Bradycardia [Recovered/Resolved]
  - Drug administered at inappropriate site [Recovered/Resolved]
  - Electrocardiogram low voltage [Recovered/Resolved]
